FAERS Safety Report 6972966-7 (Version None)
Quarter: 2010Q3

REPORT INFORMATION
  Report Type: 
  Country: None (occurrence: None)
  Receive Date: 20100909
  Receipt Date: 20100716
  Transmission Date: 20110219
  Serious: No
  Sender: FDA-Public Use
  Company Number: US-KINGPHARMUSA00001-K201000912

PATIENT
  Sex: Female

DRUGS (1)
  1. EMBEDA [Suspect]
     Indication: PAIN
     Dosage: UNK
     Dates: start: 20100101

REACTIONS (1)
  - DRUG SCREEN FALSE POSITIVE [None]
